FAERS Safety Report 22337047 (Version 2)
Quarter: 2023Q2

REPORT INFORMATION
  Report Type: Spontaneous
  Country: GB (occurrence: GB)
  Receive Date: 20230518
  Receipt Date: 20230612
  Transmission Date: 20230721
  Serious: Yes (Other)
  Sender: FDA-Public Use
  Company Number: GB-MHRA-MED-202305091715027310-DSYGQ

PATIENT
  Sex: Male
  Weight: 88 kg

DRUGS (3)
  1. ATORVASTATIN [Suspect]
     Active Substance: ATORVASTATIN
     Indication: Coronary angioplasty
     Dosage: 80 MILLIGRAM
     Route: 065
  2. ATORVASTATIN [Suspect]
     Active Substance: ATORVASTATIN
     Indication: Adverse drug reaction
  3. PRAVASTATIN [Suspect]
     Active Substance: PRAVASTATIN
     Indication: Adverse drug reaction
     Dosage: 40 MILLIGRAM
     Route: 065

REACTIONS (2)
  - Muscle spasms [Recovering/Resolving]
  - Medication error [Unknown]
